FAERS Safety Report 8494609-6 (Version None)
Quarter: 2012Q3

REPORT INFORMATION
  Report Type: 
  Country: None (occurrence: None)
  Receive Date: 20120709
  Receipt Date: 20120627
  Transmission Date: 20120928
  Serious: Yes (Other)
  Sender: FDA-Public Use
  Company Number: JP-JNJFOC-20120701161

PATIENT
  Age: 35 Year
  Sex: Male

DRUGS (4)
  1. REMICADE [Suspect]
     Indication: CROHN'S DISEASE
     Route: 042
     Dates: start: 20030301
  2. REMICADE [Suspect]
     Route: 042
     Dates: start: 20030801
  3. MERCAPTOPURINE ANHYDROUS [Suspect]
     Indication: CROHN'S DISEASE
     Route: 065
     Dates: start: 20060701
  4. REMICADE [Suspect]
     Route: 042
     Dates: start: 20030501

REACTIONS (1)
  - DIFFUSE LARGE B-CELL LYMPHOMA [None]
